FAERS Safety Report 24217221 (Version 2)
Quarter: 2024Q3

REPORT INFORMATION
  Report Type: Spontaneous
  Country: NZ (occurrence: NZ)
  Receive Date: 20240816
  Receipt Date: 20240926
  Transmission Date: 20241016
  Serious: Yes (Life-Threatening)
  Sender: MYLAN
  Company Number: NZ-MYLANLABS-2024M1075132

PATIENT
  Sex: Male

DRUGS (1)
  1. EPIPEN [Suspect]
     Active Substance: EPINEPHRINE
     Indication: Anaphylactic reaction
     Dosage: UNK
     Route: 065

REACTIONS (5)
  - Device failure [Unknown]
  - Drug dose omission by device [Unknown]
  - Expired device used [Unknown]
  - Injection site injury [Unknown]
  - Injection site discolouration [Unknown]
